FAERS Safety Report 6042641-4 (Version None)
Quarter: 2009Q1

REPORT INFORMATION
  Report Type: 
  Country: None (occurrence: None)
  Receive Date: 20090119
  Receipt Date: 20090107
  Transmission Date: 20090719
  Serious: Yes (Other)
  Sender: FDA-Public Use
  Company Number: PHHY2009FR00753

PATIENT
  Age: 44 Year
  Sex: Female

DRUGS (1)
  1. TRILEPTAL [Suspect]
     Indication: EPILEPSY
     Dosage: UNK

REACTIONS (2)
  - AMENORRHOEA [None]
  - LACTATION DISORDER [None]
